FAERS Safety Report 4672383-9 (Version None)
Quarter: 2005Q2

REPORT INFORMATION
  Report Type: 
  Country: None (occurrence: None)
  Receive Date: 20050524
  Receipt Date: 20050512
  Transmission Date: 20051028
  Serious: Yes (Hospitalization)
  Sender: FDA-Public Use
  Company Number: 200511618FR

PATIENT
  Age: 63 Year
  Sex: Male
  Weight: 69 kg

DRUGS (9)
  1. TAXOTERE [Suspect]
     Indication: PANCREATIC CARCINOMA
     Route: 042
     Dates: start: 20050420, end: 20050420
  2. FLUOROURACIL [Suspect]
     Indication: PANCREATIC CARCINOMA
     Route: 041
     Dates: start: 20050425
  3. RADIOTHERAPY [Suspect]
     Indication: PANCREATIC CARCINOMA
     Dates: start: 20050422, end: 20050422
  4. SKENAN LP [Concomitant]
     Indication: CANCER PAIN
     Route: 048
     Dates: start: 20050301
  5. ACTISKENAN [Concomitant]
     Indication: CANCER PAIN
     Route: 048
     Dates: start: 20050201
  6. ZESTRIL [Concomitant]
     Indication: HYPERTENSION
     Route: 048
  7. LEXOMIL [Concomitant]
     Indication: INSOMNIA
     Route: 048
     Dates: start: 20050401
  8. LEXOMIL [Concomitant]
     Indication: PROPHYLAXIS
     Route: 048
     Dates: start: 20050401
  9. ACTRAPID [Concomitant]
     Indication: HYPERGLYCAEMIA
     Route: 058
     Dates: start: 20050423

REACTIONS (4)
  - GENERAL PHYSICAL HEALTH DETERIORATION [None]
  - HYPERGLYCAEMIA [None]
  - NAUSEA [None]
  - VOMITING [None]
